FAERS Safety Report 4620229-7 (Version None)
Quarter: 2005Q1

REPORT INFORMATION
  Report Type: 
  Country: None (occurrence: None)
  Receive Date: 20050321
  Receipt Date: 20050321
  Transmission Date: 20050727
  Serious: Yes (Life-Threatening, Hospitalization)
  Sender: FDA-Public Use
  Company Number: None

PATIENT
  Sex: Female
  Weight: 63.5036 kg

DRUGS (8)
  1. VIOXX [Suspect]
     Indication: OSTEOARTHRITIS
     Dosage: 50MG   DAILY   ORAL
     Route: 048
     Dates: start: 20010928, end: 20011006
  2. VIOXX [Suspect]
     Indication: OSTEOARTHRITIS
     Dosage: 25G   DAILY   ORAL
     Route: 048
     Dates: start: 20011006, end: 20020220
  3. PERSANTINE [Concomitant]
  4. PRILOSEC [Concomitant]
  5. RESTORIL [Concomitant]
  6. ESTRACE [Concomitant]
  7. CARDIZEM CD [Concomitant]
  8. OXYCONTIN [Concomitant]

REACTIONS (1)
  - MYOCARDIAL INFARCTION [None]
